FAERS Safety Report 6811766-5 (Version None)
Quarter: 2010Q2

REPORT INFORMATION
  Report Type: 
  Country: None (occurrence: None)
  Receive Date: 20100628
  Receipt Date: 20100611
  Transmission Date: 20101027
  Serious: Yes (Hospitalization)
  Sender: FDA-Public Use
  Company Number: 1000014625

PATIENT
  Age: 41 Year
  Sex: Male

DRUGS (5)
  1. CITALOPRAM HYDROBROMIDE [Suspect]
     Indication: DEPRESSED MOOD
     Dosage: 10 MG (10 MG, 1 IN 1 D),ORAL
     Route: 048
     Dates: start: 20100513, end: 20100528
  2. VALPROIC ACID [Concomitant]
  3. AMISULPRID [Concomitant]
  4. PIPAMPERON [Concomitant]
  5. LACTULOSE [Concomitant]

REACTIONS (2)
  - ELECTROCARDIOGRAM REPOLARISATION ABNORMALITY [None]
  - SCAR [None]
